FAERS Safety Report 5130172-5 (Version None)
Quarter: 2006Q4

REPORT INFORMATION
  Report Type: 
  Country: None (occurrence: None)
  Receive Date: 20061013
  Receipt Date: 20060926
  Transmission Date: 20070319
  Serious: Yes (Death, Hospitalization, Other)
  Sender: FDA-Public Use
  Company Number: US200609000165

PATIENT
  Age: 67 Year
  Sex: Female
  Weight: 82.1 kg

DRUGS (11)
  1. GEMZAR [Suspect]
     Indication: PANCREATIC CARCINOMA METASTATIC
     Dosage: 1400 MG, INTRAVENOUS; SEE IMAGE
     Route: 042
     Dates: start: 20060526, end: 20060821
  2. GEMZAR [Suspect]
     Indication: PANCREATIC CARCINOMA METASTATIC
     Dosage: 1400 MG, INTRAVENOUS; SEE IMAGE
     Route: 042
     Dates: start: 20060101
  3. XELODA                                         /GFR/ (CAPECITABINE) [Concomitant]
  4. LASIX [Concomitant]
  5. METFORMIN HCL [Concomitant]
  6. SPIRONOLACTONE [Concomitant]
  7. GLYBURIDE [Concomitant]
  8. HORMONES AND RELATED AGENTS [Concomitant]
  9. NEURONTIN [Concomitant]
  10. ALLEGRA [Concomitant]
  11. MORPHINE SULFATE [Concomitant]

REACTIONS (19)
  - ALANINE AMINOTRANSFERASE INCREASED [None]
  - ANOREXIA [None]
  - ASPARTATE AMINOTRANSFERASE INCREASED [None]
  - BACTERIAL SEPSIS [None]
  - BLOOD ALBUMIN DECREASED [None]
  - BLOOD ALKALINE PHOSPHATASE INCREASED [None]
  - BLOOD BILIRUBIN INCREASED [None]
  - BLOOD POTASSIUM INCREASED [None]
  - BLOOD UREA INCREASED [None]
  - DEHYDRATION [None]
  - DEPRESSED LEVEL OF CONSCIOUSNESS [None]
  - DISSEMINATED INTRAVASCULAR COAGULATION [None]
  - HYPOGLYCAEMIA [None]
  - HYPOTENSION [None]
  - INTERNATIONAL NORMALISED RATIO INCREASED [None]
  - LOSS OF CONSCIOUSNESS [None]
  - ORAL INTAKE REDUCED [None]
  - PANCYTOPENIA [None]
  - TACHYCARDIA [None]
